FAERS Safety Report 22722668 (Version 2)
Quarter: 2023Q4

REPORT INFORMATION
  Report Type: Spontaneous
  Country: US (occurrence: US)
  Receive Date: 20230719
  Receipt Date: 20231019
  Transmission Date: 20240110
  Serious: No
  Sender: FDA-Public Use
  Company Number: US-BRISTOL-MYERS SQUIBB COMPANY-2023-101566

PATIENT
  Age: 66 Year
  Sex: Female

DRUGS (1)
  1. ORENCIA [Suspect]
     Active Substance: ABATACEPT
     Indication: Product used for unknown indication
     Dosage: DOSE : UNKNOWN;     FREQ : INJECT 125 MG/ML SUBCUTANEOUSLY ONCE A WEEK
     Route: 058

REACTIONS (4)
  - Auditory disorder [Unknown]
  - Pruritus [Unknown]
  - Rash [Unknown]
  - Carpal tunnel syndrome [Unknown]
